FAERS Safety Report 6273564-3 (Version None)
Quarter: 2009Q3

REPORT INFORMATION
  Report Type: 
  Country: None (occurrence: None)
  Receive Date: 20090715
  Receipt Date: 20090710
  Transmission Date: 20100115
  Serious: Yes (Hospitalization)
  Sender: FDA-Public Use
  Company Number: GXKR2009DE07873

PATIENT
  Age: 74 Year
  Sex: Male

DRUGS (1)
  1. AMOXICILLIN [Suspect]
     Indication: PERIODONTAL OPERATION
     Dates: start: 20090301

REACTIONS (6)
  - CIRCULATORY COLLAPSE [None]
  - COLITIS ULCERATIVE [None]
  - DIARRHOEA [None]
  - ENDOCARDITIS [None]
  - GENERAL PHYSICAL CONDITION NORMAL [None]
  - PSEUDOMEMBRANOUS COLITIS [None]
